FAERS Safety Report 5839355-X (Version None)
Quarter: 2008Q3

REPORT INFORMATION
  Report Type: 
  Country: None (occurrence: None)
  Receive Date: 20080806
  Receipt Date: 20080725
  Transmission Date: 20090109
  Serious: No
  Sender: FDA-Public Use
  Company Number: 2008-181221-NL

PATIENT
  Sex: Male

DRUGS (3)
  1. DEXAMETHASONE TAB [Suspect]
     Dosage: DF
  2. DOXORUBICIN HCL [Suspect]
     Dosage: DF
  3. BORTEZOMIB [Suspect]
     Dosage: DF

REACTIONS (1)
  - THROMBOCYTOPENIA [None]
